FAERS Safety Report 19847799 (Version 10)
Quarter: 2023Q1

REPORT INFORMATION
  Report Type: Spontaneous
  Country: US (occurrence: US)
  Receive Date: 20210917
  Receipt Date: 20230329
  Transmission Date: 20230418
  Serious: Yes (Hospitalization, Other)
  Sender: FDA-Public Use
  Company Number: US-PFIZER INC-202101212830

PATIENT
  Age: 72 Year
  Sex: Female
  Weight: 65.76 kg

DRUGS (1)
  1. XELJANZ XR [Suspect]
     Active Substance: TOFACITINIB CITRATE
     Indication: Rheumatoid arthritis
     Dosage: 11 MG, DAILY
     Route: 048
     Dates: start: 2021

REACTIONS (4)
  - COVID-19 pneumonia [Recovered/Resolved]
  - Nerve compression [Unknown]
  - Spinal stenosis [Unknown]
  - Cervical radiculopathy [Unknown]

NARRATIVE: CASE EVENT DATE: 20210601
